FAERS Safety Report 17659185 (Version 1)
Quarter: 2020Q2

REPORT INFORMATION
  Report Type: Report from Study
  Country: SE (occurrence: SE)
  Receive Date: 20200413
  Receipt Date: 20200413
  Transmission Date: 20200713
  Serious: Yes (Life-Threatening, Hospitalization, Other)
  Sender: FDA-Public Use
  Company Number: SE-AUROBINDO-AUR-APL-2020-017478

PATIENT
  Age: 58 Year
  Sex: Female

DRUGS (7)
  1. AMLODIPINE [Suspect]
     Active Substance: AMLODIPINE BESYLATE
     Indication: PRODUCT USED FOR UNKNOWN INDICATION
     Dosage: UNK
     Route: 048
  2. MIRTAZAPINE. [Suspect]
     Active Substance: MIRTAZAPINE
     Indication: PRODUCT USED FOR UNKNOWN INDICATION
     Dosage: UNK
     Route: 065
  3. CITALOPRAM [Suspect]
     Active Substance: CITALOPRAM HYDROBROMIDE
     Indication: PRODUCT USED FOR UNKNOWN INDICATION
     Dosage: UNK
     Route: 065
  4. INSULIN [Suspect]
     Active Substance: INSULIN NOS
     Indication: CARDIAC DYSFUNCTION
     Dosage: LOADING DOSE: 1 U/KG FOLLOWED BY INFUSION AT 1 U/KG/H, 5 U/KG/H AND THEN 10 U/KG/H
     Route: 050
  5. GLUCAGON. [Suspect]
     Active Substance: GLUCAGON
     Indication: CARDIAC DYSFUNCTION
     Dosage: UNK
     Route: 065
  6. GLUCOSE [Concomitant]
     Active Substance: DEXTROSE
     Indication: DIABETES MELLITUS MANAGEMENT
     Dosage: UNK, INFUSION ROUTE
     Route: 050
  7. BISOPROLOL [Suspect]
     Active Substance: BISOPROLOL
     Indication: PRODUCT USED FOR UNKNOWN INDICATION
     Dosage: UNK
     Route: 048

REACTIONS (5)
  - Cardiac dysfunction [Recovered/Resolved]
  - Intentional overdose [Unknown]
  - Respiratory failure [Recovered/Resolved]
  - Non-cardiogenic pulmonary oedema [Recovered/Resolved]
  - Toxicity to various agents [Unknown]
